FAERS Safety Report 5478655-2 (Version None)
Quarter: 2007Q4

REPORT INFORMATION
  Report Type: 
  Country: None (occurrence: None)
  Receive Date: 20071005
  Receipt Date: 20070926
  Transmission Date: 20080405
  Serious: Yes (Hospitalization)
  Sender: FDA-Public Use
  Company Number: DE-GENENTECH-244989

PATIENT
  Age: 68 Year
  Sex: Female
  Weight: 78 kg

DRUGS (8)
  1. RITUXIMAB [Suspect]
     Indication: NON-HODGKIN'S LYMPHOMA
     Dosage: 375 MG/M2, UNK
     Route: 042
     Dates: start: 20060817, end: 20060817
  2. RITUXIMAB [Suspect]
     Dosage: 633 MG, UNK
     Route: 042
     Dates: start: 20061011, end: 20061214
  3. RITUXIMAB [Suspect]
     Dosage: 630 MG, UNK
     Route: 042
     Dates: start: 20061123
  4. RITUXIMAB [Suspect]
     Dosage: 637 MG, UNK
     Route: 042
     Dates: start: 20070105, end: 20070125
  5. DOXORUBICIN HCL [Suspect]
     Indication: NON-HODGKIN'S LYMPHOMA
     Dosage: 50 MG/M2, Q3W
     Route: 042
     Dates: start: 20060818
  6. VINCRISTINE [Suspect]
     Indication: NON-HODGKIN'S LYMPHOMA
     Dosage: 2 MG, Q3W
     Route: 042
     Dates: start: 20060818
  7. CYCLOPHOSPHAMIDE [Concomitant]
     Indication: NON-HODGKIN'S LYMPHOMA
     Dosage: 750 MG/M2, UNK
     Route: 042
     Dates: start: 20060818, end: 20070818
  8. PREDNISONE [Concomitant]
     Indication: NON-HODGKIN'S LYMPHOMA
     Dosage: 100 MG, Q3W
     Route: 042
     Dates: start: 20060818, end: 20060822

REACTIONS (4)
  - HIATUS HERNIA [None]
  - HYPERBILIRUBINAEMIA [None]
  - HYPOKALAEMIA [None]
  - PERICARDIAL EFFUSION [None]
